FAERS Safety Report 7462682-X (Version None)
Quarter: 2011Q2

REPORT INFORMATION
  Report Type: 
  Country: None (occurrence: None)
  Receive Date: 20110506
  Receipt Date: 20110426
  Transmission Date: 20111010
  Serious: Yes (Hospitalization, Other)
  Sender: FDA-Public Use
  Company Number: US-AMGEN-USASP2011021943

PATIENT
  Age: 26 Year
  Sex: Female

DRUGS (3)
  1. ENBREL [Suspect]
     Indication: RHEUMATOID ARTHRITIS
  2. HUMIRA [Concomitant]
  3. ENBREL [Suspect]
     Indication: PSORIASIS
     Dosage: 50 MG, QWK
     Route: 058
     Dates: start: 20050101, end: 20080701

REACTIONS (10)
  - LOSS OF CONSCIOUSNESS [None]
  - DRUG INEFFECTIVE [None]
  - VICTIM OF SEXUAL ABUSE [None]
  - CONVULSION [None]
  - POSTPARTUM HAEMORRHAGE [None]
  - FALL [None]
  - FLUID RETENTION [None]
  - CARDIAC FAILURE CONGESTIVE [None]
  - PSORIASIS [None]
  - PYREXIA [None]
